FAERS Safety Report 4952286-2 (Version None)
Quarter: 2006Q1

REPORT INFORMATION
  Report Type: 
  Country: None (occurrence: None)
  Receive Date: 20060320
  Receipt Date: 20060309
  Transmission Date: 20060701
  Serious: Yes (Hospitalization, Other)
  Sender: FDA-Public Use
  Company Number: 25629

PATIENT
  Age: 36 Year
  Sex: Female
  Weight: 152 kg

DRUGS (1)
  1. DACARBAZINE [Suspect]
     Indication: METASTATIC MALIGNANT MELANOMA
     Dosage: 2510-2530 MG/IV
     Dates: start: 20060117, end: 20060206

REACTIONS (1)
  - ABDOMINAL PAIN [None]
